FAERS Safety Report 14125960 (Version 1)
Quarter: 2017Q4

REPORT INFORMATION
  Report Type: Spontaneous
  Country: US (occurrence: US)
  Receive Date: 20171025
  Receipt Date: 20171025
  Transmission Date: 20180321
  Serious: No
  Sender: FDA-Public Use
  Company Number: US-BAYER-2017-204935

PATIENT

DRUGS (1)
  1. CLARITIN [Suspect]
     Active Substance: LORATADINE
     Dosage: UNK
     Route: 048
     Dates: start: 201710, end: 201710

REACTIONS (4)
  - Swollen tongue [Unknown]
  - Tongue disorder [Unknown]
  - Glossodynia [Unknown]
  - Glossodynia [Recovering/Resolving]

NARRATIVE: CASE EVENT DATE: 201710
